FAERS Safety Report 6378131-9 (Version None)
Quarter: 2009Q3

REPORT INFORMATION
  Report Type: 
  Country: None (occurrence: None)
  Receive Date: 20090925
  Receipt Date: 20090912
  Transmission Date: 20100115
  Serious: Yes (Other)
  Sender: FDA-Public Use
  Company Number: PT-GENENTECH-290979

PATIENT

DRUGS (2)
  1. AVASTIN [Suspect]
     Indication: DRUG USE FOR UNKNOWN INDICATION
     Dosage: 10 MG/KG, Q2W
     Route: 065
     Dates: start: 20080201, end: 20090701
  2. IRINOTECAN HCL [Suspect]
     Indication: DRUG USE FOR UNKNOWN INDICATION
     Dosage: 1 UNK, Q2W
     Route: 065
     Dates: start: 20090201, end: 20090901

REACTIONS (11)
  - DIARRHOEA [None]
  - EPISTAXIS [None]
  - FEBRILE NEUTROPENIA [None]
  - HEPATOTOXICITY [None]
  - HYPERTENSION [None]
  - HYPOTENSION [None]
  - LEUKOPENIA [None]
  - RESPIRATORY TRACT INFECTION [None]
  - THROMBOCYTOPENIA [None]
  - THROMBOPHLEBITIS [None]
  - TUMOUR HAEMORRHAGE [None]
